FAERS Safety Report 6297584-8 (Version None)
Quarter: 2009Q3

REPORT INFORMATION
  Report Type: 
  Country: None (occurrence: None)
  Receive Date: 20090805
  Receipt Date: 20090727
  Transmission Date: 20100115
  Serious: Yes (Hospitalization)
  Sender: FDA-Public Use
  Company Number: US-ASTRAZENECA-2009SE06118

PATIENT
  Age: 67 Year
  Sex: Male
  Weight: 117.9 kg

DRUGS (27)
  1. LISINOPRIL AND HYDROCHLOROTHIAZIDE [Suspect]
     Route: 048
     Dates: start: 20070201, end: 20090531
  2. MORPHINE SULFATE [Suspect]
     Route: 048
  3. HYDROCODONE [Suspect]
     Dosage: 10/325 MG AS NEEDED
     Route: 048
     Dates: start: 20090213
  4. CELECOXIB [Suspect]
     Indication: OSTEOARTHRITIS
     Route: 048
     Dates: start: 20090423, end: 20090531
  5. IBUPROFEN [Suspect]
     Indication: OSTEOARTHRITIS
     Route: 048
     Dates: start: 20090423, end: 20090531
  6. NAPROXEN [Suspect]
     Indication: OSTEOARTHRITIS
     Route: 048
     Dates: start: 20090423, end: 20090531
  7. PLACEBO [Suspect]
     Indication: OSTEOARTHRITIS
     Route: 048
     Dates: start: 20090423, end: 20090531
  8. LISINOPRIL [Concomitant]
     Route: 048
     Dates: start: 20090531
  9. ESOMEPRAZOLE [Concomitant]
     Indication: GASTROOESOPHAGEAL REFLUX PROPHYLAXIS
     Route: 048
     Dates: start: 20090422, end: 20090531
  10. CYMBALTA [Concomitant]
     Route: 048
     Dates: start: 20080819
  11. METHOCARBAMOL [Concomitant]
     Route: 048
     Dates: start: 20041001
  12. RESTORIL [Concomitant]
     Route: 048
     Dates: start: 20041001
  13. PHENOBARBITAL [Concomitant]
     Dates: start: 20090109
  14. NEURONTIN [Concomitant]
     Dates: start: 20070101
  15. VITAMIN D3 [Concomitant]
     Dates: start: 20050101
  16. ESTER-C [Concomitant]
     Route: 048
     Dates: start: 20050101
  17. OMEGA-3 TRIGLYCERIDES [Concomitant]
     Dates: start: 20050101
  18. IRON [Concomitant]
     Dates: start: 20050101
  19. FIORICET [Concomitant]
     Route: 048
     Dates: start: 20050101
  20. LOMOTIL [Concomitant]
     Dates: start: 20070201
  21. PRILOSEC [Concomitant]
     Dates: start: 20080922
  22. ACETYLSALICYLIC ACID [Concomitant]
     Dates: start: 20090501
  23. LYSINE [Concomitant]
     Route: 048
     Dates: start: 20050101
  24. GABAPENTIN [Concomitant]
     Dates: start: 20090213
  25. RIFAMPIN [Concomitant]
     Route: 048
     Dates: end: 20090608
  26. PROPOXYPHENE HCL AND ACETAMINOPHEN [Concomitant]
     Route: 048
     Dates: end: 20090531
  27. TEMAZEPAM [Concomitant]
     Dates: start: 20041001

REACTIONS (4)
  - BRONCHITIS [None]
  - MENTAL STATUS CHANGES [None]
  - PARAESTHESIA [None]
  - RENAL FAILURE ACUTE [None]
